FAERS Safety Report 11193819 (Version 1)
Quarter: 2015Q2

REPORT INFORMATION
  Report Type: Spontaneous
  Country: RO (occurrence: RO)
  Receive Date: 20150616
  Receipt Date: 20150616
  Transmission Date: 20150821
  Serious: Yes (Hospitalization, Other)
  Sender: FDA-Public Use
  Company Number: RO-ELI_LILLY_AND_COMPANY-RO201506004032

PATIENT

DRUGS (11)
  1. HUMULIN N [Suspect]
     Active Substance: INSULIN HUMAN
     Dosage: 18 DF, EACH EVENING
     Route: 065
     Dates: start: 2012, end: 201303
  2. HUMAN INSULIN [Suspect]
     Active Substance: INSULIN HUMAN
     Dosage: 12 DF, QD
     Route: 065
     Dates: start: 201303
  3. HUMULIN N [Suspect]
     Active Substance: INSULIN HUMAN
     Indication: PRODUCT USED FOR UNKNOWN INDICATION
     Dosage: 20 DF, EACH MORNING
     Route: 065
     Dates: start: 2012, end: 201303
  4. HUMAN INSULIN [Suspect]
     Active Substance: INSULIN HUMAN
     Dosage: 10 DF, SINGLE
     Route: 065
     Dates: start: 201303, end: 201303
  5. HUMAN INSULIN [Suspect]
     Active Substance: INSULIN HUMAN
     Dosage: 8 DF, SINGLE
     Route: 065
     Dates: start: 201303, end: 201303
  6. METFORMIN [Suspect]
     Active Substance: METFORMIN HYDROCHLORIDE
     Indication: PRODUCT USED FOR UNKNOWN INDICATION
     Dosage: 2000 MG, QD
     Route: 065
     Dates: start: 2013
  7. HUMAN INSULIN [Suspect]
     Active Substance: INSULIN HUMAN
     Indication: PRODUCT USED FOR UNKNOWN INDICATION
     Dosage: 16 DF, SINGLE
     Route: 065
     Dates: start: 201303, end: 201303
  8. HUMAN INSULIN [Suspect]
     Active Substance: INSULIN HUMAN
     Dosage: 12 DF, SINGLE
     Route: 065
     Dates: start: 201303, end: 201303
  9. LEVEMIR [Suspect]
     Active Substance: INSULIN DETEMIR
     Indication: PRODUCT USED FOR UNKNOWN INDICATION
     Dosage: 24 U, QD
     Route: 065
     Dates: start: 201303
  10. HUMAN INSULIN [Suspect]
     Active Substance: INSULIN HUMAN
     Dosage: 12 DF, EACH MORNING
     Route: 065
     Dates: start: 201303
  11. HUMAN INSULIN [Suspect]
     Active Substance: INSULIN HUMAN
     Dosage: 10 DF, EACH EVENING
     Route: 065
     Dates: start: 201303

REACTIONS (2)
  - Coronary artery stenosis [Recovering/Resolving]
  - Hypoglycaemia [Unknown]
